FAERS Safety Report 11546811 (Version 1)
Quarter: 2015Q3

REPORT INFORMATION
  Report Type: Spontaneous
  Country: US (occurrence: US)
  Receive Date: 20150924
  Receipt Date: 20150924
  Transmission Date: 20151125
  Serious: No
  Sender: FDA-Public Use
  Company Number: US-PFIZER INC-2015318349

PATIENT
  Age: 62 Year
  Sex: Female
  Weight: 72.34 kg

DRUGS (7)
  1. EFFEXOR XR [Suspect]
     Active Substance: VENLAFAXINE HYDROCHLORIDE
     Indication: PAIN
     Dosage: 300 MG, DAILY
  2. KLONOPIN [Concomitant]
     Active Substance: CLONAZEPAM
     Indication: STRESS
     Dosage: 1 MG, 3X/DAY
  3. ACETAMINOPHEN. [Concomitant]
     Active Substance: ACETAMINOPHEN
     Dosage: UNK
  4. TRILEPTAL [Suspect]
     Active Substance: OXCARBAZEPINE
     Indication: TRIGEMINAL NEURALGIA
     Dosage: 150 MG, 2X/DAY
  5. EFFEXOR XR [Suspect]
     Active Substance: VENLAFAXINE HYDROCHLORIDE
     Indication: INJURY
     Dosage: 150 MG, 1X/DAY
     Route: 048
  6. NORCO [Concomitant]
     Active Substance: ACETAMINOPHEN\HYDROCODONE BITARTRATE
     Indication: PAIN
     Dosage: 10/325, 3X/DAY
  7. CODEINE [Concomitant]
     Active Substance: CODEINE
     Indication: HEADACHE
     Dosage: UNK

REACTIONS (7)
  - Depressed mood [Unknown]
  - Fear [Unknown]
  - Drug ineffective [Unknown]
  - Product use issue [Unknown]
  - Road traffic accident [Unknown]
  - Vitamin D decreased [Unknown]
  - Neck injury [Unknown]

NARRATIVE: CASE EVENT DATE: 201509
